FAERS Safety Report 9798746 (Version 1)
Quarter: 2014Q1

REPORT INFORMATION
  Report Type: Spontaneous
  Country: US (occurrence: US)
  Receive Date: 20140106
  Receipt Date: 20140106
  Transmission Date: 20141002
  Serious: No
  Sender: FDA-Public Use
  Company Number: US-GILEAD-2010-0030048

PATIENT
  Age: 72 Year
  Sex: Male
  Weight: 68.04 kg

DRUGS (12)
  1. LETAIRIS [Suspect]
     Indication: PULMONARY ARTERIAL HYPERTENSION
     Route: 048
     Dates: start: 20090716
  2. PREDNISONE [Concomitant]
  3. FORADIL [Concomitant]
  4. SPIRIVA [Concomitant]
  5. OXYGEN [Concomitant]
  6. FUROSEMIDE [Concomitant]
  7. DILTIAZEM [Concomitant]
  8. COUMADIN [Concomitant]
  9. NEXIUM [Concomitant]
  10. LEVOTHYROXINE [Concomitant]
  11. VITAMIN [Concomitant]
  12. SILDENAFIL CITRATE [Concomitant]

REACTIONS (3)
  - Upper-airway cough syndrome [Unknown]
  - Nasal congestion [Unknown]
  - Sinus disorder [Unknown]
